FAERS Safety Report 8324953-4 (Version None)
Quarter: 2012Q2

REPORT INFORMATION
  Report Type: 
  Country: None (occurrence: None)
  Receive Date: 20120501
  Receipt Date: 20120406
  Transmission Date: 20120825
  Serious: Yes (Other)
  Sender: FDA-Public Use
  Company Number: US-ELI_LILLY_AND_COMPANY-US201204003473

PATIENT
  Age: 92 Year
  Sex: Female

DRUGS (2)
  1. HUMALOG [Suspect]
     Indication: DIABETES MELLITUS
     Dosage: UNK, PRN
  2. HUMALOG MIX 75/25 [Suspect]
     Indication: DIABETES MELLITUS

REACTIONS (10)
  - RETINOPATHY [None]
  - BASEDOW'S DISEASE [None]
  - MACULAR DEGENERATION [None]
  - EMOTIONAL DISTRESS [None]
  - BLINDNESS [None]
  - DIABETIC NEUROPATHY [None]
  - VISUAL IMPAIRMENT [None]
  - BLOOD GLUCOSE INCREASED [None]
  - MEMORY IMPAIRMENT [None]
  - INCORRECT DOSE ADMINISTERED [None]
